FAERS Safety Report 4583585-4 (Version None)
Quarter: 2005Q1

REPORT INFORMATION
  Report Type: 
  Country: None (occurrence: None)
  Receive Date: 20050125
  Receipt Date: 20041011
  Transmission Date: 20050727
  Serious: No
  Sender: FDA-Public Use
  Company Number: USA041080806

PATIENT
  Age: 82 Year
  Sex: Female

DRUGS (6)
  1. FORTEO [Suspect]
     Indication: OSTEOPOROSIS
     Dates: start: 20030301, end: 20041009
  2. AVAPRO [Concomitant]
  3. OSCAL (CALCIUM CARBONATE) [Concomitant]
  4. .. [Suspect]
  5. DIZZINESS [Concomitant]
  6. HEART RATE INCREASED [Concomitant]

REACTIONS (6)
  - ANOREXIA [None]
  - ASTHENIA [None]
  - DIZZINESS [None]
  - FATIGUE [None]
  - HEART RATE INCREASED [None]
  - TREMOR [None]
